FAERS Safety Report 8451239-X (Version None)
Quarter: 2012Q2

REPORT INFORMATION
  Report Type: 
  Country: None (occurrence: None)
  Receive Date: 20120620
  Receipt Date: 20120308
  Transmission Date: 20120825
  Serious: No
  Sender: FDA-Public Use
  Company Number: US-VERTEX PHARMACEUTICALS INC.-AE-2012-001334

PATIENT
  Sex: Male
  Weight: 90.8 kg

DRUGS (7)
  1. INCIVEK [Suspect]
     Indication: HEPATITIS C
     Route: 048
     Dates: start: 20120120
  2. MINERAL OIL [Concomitant]
  3. PEGASYS [Concomitant]
     Indication: HEPATITIS C
     Route: 058
     Dates: start: 20120120
  4. RIBAVIRIN [Concomitant]
     Indication: HEPATITIS C
     Route: 048
     Dates: start: 20120120
  5. HYDROXYZINE [Concomitant]
     Indication: PRURITUS
     Route: 048
  6. ZOLOFT [Concomitant]
     Indication: DEPRESSION
     Route: 048
  7. MULTI-VITAMIN [Concomitant]
     Route: 048

REACTIONS (7)
  - ORAL PAIN [None]
  - PAIN OF SKIN [None]
  - HAEMORRHOIDS [None]
  - CHILLS [None]
  - ACNE [None]
  - RECTAL FISSURE [None]
  - NAUSEA [None]
